FAERS Safety Report 22233962 (Version 1)
Quarter: 2023Q2

REPORT INFORMATION
  Report Type: Spontaneous
  Country: JP (occurrence: JP)
  Receive Date: 20230420
  Receipt Date: 20230420
  Transmission Date: 20230722
  Serious: Yes (Life-Threatening, Hospitalization, Other)
  Sender: FDA-Public Use
  Company Number: JP-PFIZER INC-PV202300071015

PATIENT
  Age: 69 Year
  Sex: Female

DRUGS (1)
  1. MEDROXYPROGESTERONE [Suspect]
     Active Substance: MEDROXYPROGESTERONE
     Route: 048

REACTIONS (3)
  - Adrenal insufficiency [Unknown]
  - Metabolic encephalopathy [Unknown]
  - Venous thrombosis limb [Unknown]
